FAERS Safety Report 7096838-5 (Version None)
Quarter: 2010Q4

REPORT INFORMATION
  Report Type: 
  Country: None (occurrence: None)
  Receive Date: 20101111
  Receipt Date: 20100421
  Transmission Date: 20110411
  Serious: No
  Sender: FDA-Public Use
  Company Number: US-KINGPHARMUSA00001-K201000471

PATIENT
  Sex: Female

DRUGS (10)
  1. FLECTOR [Suspect]
     Indication: INTERVERTEBRAL DISC DISORDER
     Dosage: 1 PATCH, EVERY 12 HOURS
     Route: 061
     Dates: start: 20100419, end: 20100421
  2. FLECTOR [Suspect]
     Indication: BACK PAIN
  3. OMEPRAZOLE [Concomitant]
     Indication: GASTROOESOPHAGEAL REFLUX DISEASE
     Dosage: UNK
  4. DETROL LA [Concomitant]
     Indication: POLLAKIURIA
     Dosage: 4 MG, QD
  5. PREMARIN [Concomitant]
     Indication: POSTMENOPAUSE
     Dosage: 0.625 MG DAILY, 5 DAYS PER WEEK
     Route: 048
  6. XANAX [Concomitant]
     Indication: POOR QUALITY SLEEP
     Dosage: 1/2 OF A 0.5 MG TABLET, QHS
     Route: 048
  7. OS-CAL [Concomitant]
     Dosage: UNK
  8. CENTRUM SILVER [Concomitant]
     Dosage: UNK
  9. CORTISONE [Concomitant]
     Indication: BURSITIS
     Dosage: UNK
     Dates: start: 20100419, end: 20100419
  10. ASPIRIN [Concomitant]

REACTIONS (3)
  - APPLICATION SITE ERYTHEMA [None]
  - ERYTHEMA [None]
  - SWELLING FACE [None]
